FAERS Safety Report 10185556 (Version 1)
Quarter: 2014Q2

REPORT INFORMATION
  Report Type: Spontaneous
  Country: GB (occurrence: GB)
  Receive Date: 20140521
  Receipt Date: 20140521
  Transmission Date: 20141212
  Serious: Yes (Other)
  Sender: FDA-Public Use
  Company Number: GB-PFIZER INC-2014135933

PATIENT
  Age: 46 Year
  Sex: Female
  Weight: 117.3 kg

DRUGS (12)
  1. RAMIPRIL [Suspect]
     Dosage: 2.5 MG, UNK
     Route: 065
     Dates: start: 20140425
  2. AMITRIPTYLINE HYDROCHLORIDE [Concomitant]
     Dosage: UNK
     Route: 065
     Dates: start: 20140225
  3. DERMOVATE [Concomitant]
     Dosage: UNK
     Route: 065
     Dates: start: 20140225, end: 20140325
  4. IBUPROFEN [Concomitant]
     Dosage: UNK
     Route: 065
     Dates: start: 20140326, end: 20140423
  5. LACTULOSE [Concomitant]
     Dosage: UNK
     Route: 065
     Dates: start: 20140326, end: 20140411
  6. LANSOPRAZOLE [Concomitant]
     Dosage: UNK
     Route: 065
     Dates: start: 20140225, end: 20140325
  7. METFORMIN [Concomitant]
     Dosage: UNK
     Route: 065
     Dates: start: 20140225, end: 20140325
  8. NAPROXEN [Concomitant]
     Dosage: UNK
     Route: 065
     Dates: start: 20140225, end: 20140325
  9. OILATUM [Concomitant]
     Dosage: UNK
     Route: 065
     Dates: start: 20140225, end: 20140325
  10. PARACETAMOL [Concomitant]
     Dosage: UNK
     Route: 065
     Dates: start: 20140225, end: 20140322
  11. SENNA [Concomitant]
     Dosage: UNK
     Route: 065
     Dates: start: 20140326, end: 20140425
  12. ZAPAIN [Concomitant]
     Dosage: UNK
     Route: 065
     Dates: start: 20140326, end: 20140423

REACTIONS (7)
  - Anaphylactic shock [Recovered/Resolved]
  - Anaphylactic reaction [Recovered/Resolved]
  - Swollen tongue [Recovered/Resolved]
  - Pharyngeal oedema [Recovered/Resolved]
  - Chest pain [Recovered/Resolved]
  - Drooling [Recovered/Resolved]
  - Vomiting [Recovered/Resolved]
